FAERS Safety Report 13363810 (Version 4)
Quarter: 2017Q2

REPORT INFORMATION
  Report Type: Spontaneous
  Country: FR (occurrence: FR)
  Receive Date: 20170323
  Receipt Date: 20170616
  Transmission Date: 20170830
  Serious: Yes (Other)
  Sender: FDA-Public Use
  Company Number: FR-JNJFOC-20170321662

PATIENT
  Age: 44 Year
  Sex: Male

DRUGS (29)
  1. HALDOL DECANOAS [Suspect]
     Active Substance: HALOPERIDOL DECANOATE
     Indication: PARANOIA
     Route: 030
     Dates: start: 2012, end: 201210
  2. HALDOL DECANOAS [Suspect]
     Active Substance: HALOPERIDOL DECANOATE
     Indication: ABNORMAL BEHAVIOUR
     Route: 030
     Dates: start: 2008, end: 2012
  3. TERCIAN [Concomitant]
     Active Substance: CYAMEMAZINE
     Indication: ABNORMAL BEHAVIOUR
     Route: 065
     Dates: start: 1998
  4. NOCTRAN [Concomitant]
     Active Substance: ACEPROMAZINE MALEATE\ACEPROMETAZINE\CLORAZEPATE DIPOTASSIUM
     Indication: PARANOIA
     Route: 065
     Dates: start: 2002
  5. HALDOL DECANOAS [Suspect]
     Active Substance: HALOPERIDOL DECANOATE
     Indication: PARANOIA
     Route: 030
     Dates: start: 2002
  6. HALDOL DECANOAS [Suspect]
     Active Substance: HALOPERIDOL DECANOATE
     Indication: PARANOIA
     Route: 030
     Dates: start: 1998, end: 2002
  7. HALDOL DECANOAS [Suspect]
     Active Substance: HALOPERIDOL DECANOATE
     Indication: AGGRESSION
     Route: 030
     Dates: start: 2004, end: 2008
  8. LEPTICUR [Concomitant]
     Active Substance: TROPATEPINE HYDROCHLORIDE
     Indication: AGGRESSION
     Route: 065
     Dates: start: 1998
  9. HALDOL DECANOAS [Suspect]
     Active Substance: HALOPERIDOL DECANOATE
     Indication: AGGRESSION
     Route: 030
     Dates: start: 2002, end: 2004
  10. HALDOL DECANOAS [Suspect]
     Active Substance: HALOPERIDOL DECANOATE
     Indication: AGGRESSION
     Route: 030
  11. HALDOL DECANOAS [Suspect]
     Active Substance: HALOPERIDOL DECANOATE
     Indication: ABNORMAL BEHAVIOUR
     Route: 030
     Dates: start: 2002, end: 2004
  12. HALDOL DECANOAS [Suspect]
     Active Substance: HALOPERIDOL DECANOATE
     Indication: ABNORMAL BEHAVIOUR
     Route: 030
     Dates: start: 2012, end: 201210
  13. HALDOL DECANOAS [Suspect]
     Active Substance: HALOPERIDOL DECANOATE
     Indication: PARANOIA
     Route: 030
     Dates: start: 1998
  14. HALDOL DECANOAS [Suspect]
     Active Substance: HALOPERIDOL DECANOATE
     Indication: ABNORMAL BEHAVIOUR
     Route: 030
     Dates: start: 1998, end: 2002
  15. HALDOL DECANOAS [Suspect]
     Active Substance: HALOPERIDOL DECANOATE
     Indication: PARANOIA
     Route: 030
     Dates: start: 2004, end: 2008
  16. HALDOL DECANOAS [Suspect]
     Active Substance: HALOPERIDOL DECANOATE
     Indication: PARANOIA
     Route: 030
     Dates: start: 2002, end: 2004
  17. HALDOL DECANOAS [Suspect]
     Active Substance: HALOPERIDOL DECANOATE
     Indication: ABNORMAL BEHAVIOUR
     Route: 030
     Dates: start: 2002
  18. HALDOL DECANOAS [Suspect]
     Active Substance: HALOPERIDOL DECANOATE
     Indication: ABNORMAL BEHAVIOUR
     Route: 030
     Dates: start: 2004, end: 2008
  19. TERCIAN [Concomitant]
     Active Substance: CYAMEMAZINE
     Indication: AGGRESSION
     Route: 065
     Dates: start: 1998
  20. LEPTICUR [Concomitant]
     Active Substance: TROPATEPINE HYDROCHLORIDE
     Indication: ABNORMAL BEHAVIOUR
     Route: 065
     Dates: start: 1998
  21. HALDOL DECANOAS [Suspect]
     Active Substance: HALOPERIDOL DECANOATE
     Indication: PARANOIA
     Route: 030
  22. HALDOL DECANOAS [Suspect]
     Active Substance: HALOPERIDOL DECANOATE
     Indication: PARANOIA
     Route: 030
     Dates: start: 2008, end: 2012
  23. HALDOL DECANOAS [Suspect]
     Active Substance: HALOPERIDOL DECANOATE
     Indication: AGGRESSION
     Route: 030
     Dates: start: 2008, end: 2012
  24. HALDOL DECANOAS [Suspect]
     Active Substance: HALOPERIDOL DECANOATE
     Indication: AGGRESSION
     Route: 030
     Dates: start: 1998
  25. HALDOL DECANOAS [Suspect]
     Active Substance: HALOPERIDOL DECANOATE
     Indication: AGGRESSION
     Route: 030
     Dates: start: 2002
  26. HALDOL DECANOAS [Suspect]
     Active Substance: HALOPERIDOL DECANOATE
     Indication: AGGRESSION
     Route: 030
     Dates: start: 1998, end: 2002
  27. HALDOL DECANOAS [Suspect]
     Active Substance: HALOPERIDOL DECANOATE
     Indication: AGGRESSION
     Route: 030
     Dates: start: 2012, end: 201210
  28. HALDOL DECANOAS [Suspect]
     Active Substance: HALOPERIDOL DECANOATE
     Indication: ABNORMAL BEHAVIOUR
     Route: 030
  29. HALDOL DECANOAS [Suspect]
     Active Substance: HALOPERIDOL DECANOATE
     Indication: ABNORMAL BEHAVIOUR
     Route: 030
     Dates: start: 1998

REACTIONS (15)
  - Thrombocytopenia [Not Recovered/Not Resolved]
  - Gait disturbance [Recovering/Resolving]
  - Loss of libido [Not Recovered/Not Resolved]
  - Necrospermia [Not Recovered/Not Resolved]
  - Memory impairment [Recovering/Resolving]
  - Hypercholesterolaemia [Unknown]
  - Weight increased [Unknown]
  - Impatience [Unknown]
  - Vision blurred [Unknown]
  - Hypospermia [Not Recovered/Not Resolved]
  - Oligospermia [Not Recovered/Not Resolved]
  - Hyperhidrosis [Unknown]
  - Erectile dysfunction [Not Recovered/Not Resolved]
  - Trismus [Unknown]
  - Muscle spasms [Unknown]

NARRATIVE: CASE EVENT DATE: 1998
